FAERS Safety Report 13917421 (Version 24)
Quarter: 2022Q4

REPORT INFORMATION
  Report Type: Spontaneous
  Country: GB (occurrence: GB)
  Receive Date: 20170829
  Receipt Date: 20221202
  Transmission Date: 20230113
  Serious: Yes (Death, Other)
  Sender: FDA-Public Use
  Company Number: GB-EMA-DD-20171215-KSEVHUMANWT-165510

PATIENT
  Age: 44 Year
  Sex: Female

DRUGS (22)
  1. MORPHINE SULFATE [Suspect]
     Active Substance: MORPHINE SULFATE
     Indication: Product used for unknown indication
     Dosage: 6-7 TABLETS
     Route: 048
     Dates: start: 20161014, end: 20161014
  2. MORPHINE SULFATE [Suspect]
     Active Substance: MORPHINE SULFATE
     Dosage: UNKNOWN
     Route: 065
  3. MORPHINE SULFATE [Suspect]
     Active Substance: MORPHINE SULFATE
     Dosage: 1 TOTAL, 6 OR 7 TABLETS
     Route: 065
     Dates: start: 20161014, end: 20161014
  4. MORPHINE SULFATE [Suspect]
     Active Substance: MORPHINE SULFATE
     Dosage: UNKNOWN
     Route: 065
  5. PREGABALIN [Suspect]
     Active Substance: PREGABALIN
     Indication: Product used for unknown indication
     Dosage: 3 DF, TOTAL
     Route: 065
  6. PREGABALIN [Suspect]
     Active Substance: PREGABALIN
     Dosage: UNK
     Route: 065
  7. PREGABALIN [Suspect]
     Active Substance: PREGABALIN
     Dosage: 3 DF,TOTAL
     Route: 065
     Dates: start: 20161015, end: 20161015
  8. COCODAMOL [Suspect]
     Active Substance: ACETAMINOPHEN\CODEINE PHOSPHATE
     Indication: Analgesic therapy
     Dosage: 28 DOSAGE FORM, ONCE A DAY
     Route: 048
  9. COCODAMOL [Suspect]
     Active Substance: ACETAMINOPHEN\CODEINE PHOSPHATE
     Indication: Pain
     Dosage: 28 DF, QD
     Route: 065
  10. ACETAMINOPHEN [Suspect]
     Active Substance: ACETAMINOPHEN
     Indication: Pain
     Dosage: UNK
     Route: 065
  11. ACETAMINOPHEN [Suspect]
     Active Substance: ACETAMINOPHEN
     Dosage: UNK UNK, QD,
     Route: 065
     Dates: start: 20161014, end: 20161014
  12. ACETAMINOPHEN [Suspect]
     Active Substance: ACETAMINOPHEN
     Dosage: UNK
     Route: 065
  13. ACETAMINOPHEN [Suspect]
     Active Substance: ACETAMINOPHEN
     Dosage: UNKNOWN
     Route: 065
  14. ACETAMINOPHEN [Suspect]
     Active Substance: ACETAMINOPHEN
     Dosage: 28 DF,QD
     Route: 065
  15. ACETAMINOPHEN [Suspect]
     Active Substance: ACETAMINOPHEN
     Dosage: UNK
     Route: 065
  16. ZOPICLONE [Suspect]
     Active Substance: ZOPICLONE
     Indication: Sleep disorder
     Dosage: 14 TABLETS FOR 2 WEEKS
     Route: 065
  17. ZOPICLONE [Suspect]
     Active Substance: ZOPICLONE
     Dosage: 14 TABLETS FOR 2 WEEKS
     Route: 048
  18. ZOPICLONE [Suspect]
     Active Substance: ZOPICLONE
     Dosage: 14 DF, QOW
     Route: 065
  19. ACETAMINOPHEN\CODEINE PHOSPHATE [Suspect]
     Active Substance: ACETAMINOPHEN\CODEINE PHOSPHATE
     Indication: Pain
     Dosage: UNK
     Route: 048
  20. ACETAMINOPHEN\CODEINE PHOSPHATE [Suspect]
     Active Substance: ACETAMINOPHEN\CODEINE PHOSPHATE
     Dosage: 28 DF, DAILY [112 TABLET, FOR TWO WEEKS]
     Route: 065
  21. ACETAMINOPHEN\CODEINE PHOSPHATE [Suspect]
     Active Substance: ACETAMINOPHEN\CODEINE PHOSPHATE
     Dosage: UNK
     Route: 048
  22. ACETAMINOPHEN\CODEINE PHOSPHATE [Suspect]
     Active Substance: ACETAMINOPHEN\CODEINE PHOSPHATE
     Indication: Pain
     Dosage: 28 DF, DAILY [112 TABLET, FOR TWO WEEKS]
     Route: 065

REACTIONS (14)
  - Dysarthria [Fatal]
  - Vision blurred [Fatal]
  - Prescription drug used without a prescription [Fatal]
  - Drug abuse [Fatal]
  - Toxicity to various agents [Fatal]
  - Accidental overdose [Fatal]
  - Accidental overdose [Fatal]
  - Pneumonia [Fatal]
  - Gait disturbance [Fatal]
  - Intentional product misuse [Fatal]
  - Eye pain [Fatal]
  - Eye pain [Fatal]
  - Gait disturbance [Fatal]
  - Drug diversion [Fatal]

NARRATIVE: CASE EVENT DATE: 20161001
